FAERS Safety Report 13116916 (Version 1)
Quarter: 2017Q1

REPORT INFORMATION
  Report Type: Spontaneous
  Country: US (occurrence: US)
  Receive Date: 20170116
  Receipt Date: 20170116
  Transmission Date: 20170428
  Serious: No
  Sender: FDA-Public Use
  Company Number: US-PFIZER INC-2017018458

PATIENT
  Age: 28 Year
  Sex: Female
  Weight: 81.65 kg

DRUGS (1)
  1. CELECOXIB. [Suspect]
     Active Substance: CELECOXIB
     Indication: ARTHRALGIA
     Dosage: 100MG TWO TIMES A DAY MAXIMUM, SOMETIME TWO 100MG TOGETHER AS NEEDED
     Dates: start: 201511, end: 20170113

REACTIONS (1)
  - Drug hypersensitivity [Recovering/Resolving]

NARRATIVE: CASE EVENT DATE: 20170101
